FAERS Safety Report 5924663-4 (Version None)
Quarter: 2008Q4

REPORT INFORMATION
  Report Type: 
  Country: None (occurrence: None)
  Receive Date: 20081015
  Receipt Date: 20080930
  Transmission Date: 20090506
  Serious: Yes (Hospitalization)
  Sender: FDA-Public Use
  Company Number: KR-JNJFOC-20080904459

PATIENT
  Age: 62 Year
  Sex: Female
  Weight: 64.9 kg

DRUGS (1)
  1. DECITABINE (DECITABINE) LYOPHILIZED  POWDER [Suspect]
     Indication: MYELODYSPLASTIC SYNDROME
     Dosage: 33 MG,  INTRAVENOUS
     Route: 042
     Dates: start: 20080825, end: 20080829

REACTIONS (5)
  - BODY TEMPERATURE INCREASED [None]
  - CULTURE URINE POSITIVE [None]
  - GASTRITIS HAEMORRHAGIC [None]
  - NEUTROPENIA [None]
  - PLATELET COUNT DECREASED [None]
